FAERS Safety Report 6043509-X (Version None)
Quarter: 2009Q1

REPORT INFORMATION
  Report Type: 
  Country: None (occurrence: None)
  Receive Date: 20090115
  Receipt Date: 20090106
  Transmission Date: 20090719
  Serious: Yes (Hospitalization)
  Sender: FDA-Public Use
  Company Number: 2008-181897-NL

PATIENT
  Sex: Male

DRUGS (1)
  1. FOLLITROPIN BETA [Suspect]
     Indication: OVARIAN DISORDER

REACTIONS (16)
  - APGAR SCORE LOW [None]
  - BLOOD ALKALINE PHOSPHATASE INCREASED [None]
  - BRONCHOPULMONARY DYSPLASIA [None]
  - CAESAREAN SECTION [None]
  - HAEMOGLOBIN DECREASED [None]
  - HYPERGLYCAEMIA [None]
  - INFANTILE APNOEIC ATTACK [None]
  - INGUINAL HERNIA [None]
  - NEONATAL CANDIDA INFECTION [None]
  - NEONATAL DISORDER [None]
  - NEONATAL RESPIRATORY DISTRESS SYNDROME [None]
  - PATENT DUCTUS ARTERIOSUS [None]
  - PREMATURE BABY [None]
  - SMALL FOR DATES BABY [None]
  - TWIN PREGNANCY [None]
  - UMBILICAL HERNIA [None]
